FAERS Safety Report 7000589-2 (Version None)
Quarter: 2010Q3

REPORT INFORMATION
  Report Type: 
  Country: None (occurrence: None)
  Receive Date: 20100920
  Receipt Date: 20091001
  Transmission Date: 20110219
  Serious: No
  Sender: FDA-Public Use
  Company Number: US-ASTRAZENECA-2009UW14002

PATIENT
  Age: 10 Year
  Sex: Male

DRUGS (4)
  1. SEROQUEL [Suspect]
     Indication: ATTENTION DEFICIT/HYPERACTIVITY DISORDER
     Route: 048
  2. SEROQUEL [Suspect]
     Indication: BIPOLAR DISORDER
     Route: 048
  3. DEPAKOTE [Concomitant]
  4. RITALIN [Concomitant]

REACTIONS (5)
  - AGGRESSION [None]
  - DISSOCIATION [None]
  - DRUG DOSE OMISSION [None]
  - EYE ROLLING [None]
  - FEELING ABNORMAL [None]
